FAERS Safety Report 8445760-8 (Version None)
Quarter: 2012Q2

REPORT INFORMATION
  Report Type: 
  Country: None (occurrence: None)
  Receive Date: 20120618
  Receipt Date: 20120613
  Transmission Date: 20120825
  Serious: Yes (Other)
  Sender: FDA-Public Use
  Company Number: JP-GLAXOSMITHKLINE-B0808387A

PATIENT
  Age: 63 Year
  Sex: Male

DRUGS (6)
  1. LAMICTAL [Suspect]
     Indication: EPILEPSY
     Dosage: 100MG PER DAY
     Route: 048
     Dates: start: 20120511, end: 20120611
  2. SODIUM VALPROATE [Concomitant]
     Route: 048
     Dates: end: 20120611
  3. EMILACE [Concomitant]
     Route: 048
     Dates: end: 20120611
  4. TASMOLIN [Concomitant]
     Route: 048
     Dates: end: 20120611
  5. BARNETIL [Concomitant]
     Route: 048
     Dates: end: 20120611
  6. PROMETHAZINE HCL [Concomitant]
     Route: 048
     Dates: end: 20120611

REACTIONS (4)
  - LOSS OF CONSCIOUSNESS [None]
  - ABULIA [None]
  - MUSCLE TIGHTNESS [None]
  - BLOOD CREATINE PHOSPHOKINASE INCREASED [None]
